FAERS Safety Report 6505279-8 (Version None)
Quarter: 2009Q4

REPORT INFORMATION
  Report Type: 
  Country: None (occurrence: None)
  Receive Date: 20091218
  Receipt Date: 20091210
  Transmission Date: 20100525
  Serious: Yes (Death, Hospitalization)
  Sender: FDA-Public Use
  Company Number: HU-AMGEN-QUU379631

PATIENT
  Sex: Male
  Weight: 60 kg

DRUGS (8)
  1. NEUPOGEN [Suspect]
     Indication: CHEMOTHERAPY
     Route: 058
     Dates: start: 20091019, end: 20091207
  2. FUROSEMIDE [Concomitant]
     Route: 048
  3. POTASSIUM [Concomitant]
     Route: 048
  4. METHYLPREDNISOLONE [Concomitant]
     Route: 048
  5. ZANTAC [Concomitant]
     Route: 048
  6. MEGESTROL ACETATE [Concomitant]
     Route: 048
  7. ETOPOSIDE [Concomitant]
  8. CARBOPLATIN [Concomitant]

REACTIONS (8)
  - BONE PAIN [None]
  - CARDIOVASCULAR DISORDER [None]
  - HAEMATOCRIT DECREASED [None]
  - HAEMOGLOBIN DECREASED [None]
  - HYPOTENSION [None]
  - LEFT VENTRICULAR FAILURE [None]
  - PLATELET COUNT DECREASED [None]
  - PULMONARY OEDEMA [None]
